FAERS Safety Report 6730556-5 (Version None)
Quarter: 2010Q2

REPORT INFORMATION
  Report Type: 
  Country: None (occurrence: None)
  Receive Date: 20100518
  Receipt Date: 20100514
  Transmission Date: 20101027
  Serious: Yes (Other)
  Sender: FDA-Public Use
  Company Number: DE-B.I. PHARMACEUTICALS,INC./RIDGEFIELD-2010-DE-02680DE

PATIENT
  Sex: Male
  Weight: 100 kg

DRUGS (2)
  1. CATAPRESAN [Suspect]
     Route: 048
  2. RIVOTRIL [Suspect]

REACTIONS (2)
  - INCORRECT DOSE ADMINISTERED [None]
  - SUICIDE ATTEMPT [None]
